FAERS Safety Report 9041135 (Version 1)
Quarter: 2013Q1

REPORT INFORMATION
  Report Type: Spontaneous
  Country: US (occurrence: None)
  Receive Date: 20130124
  Receipt Date: 20130124
  Transmission Date: 20140127
  Serious: Yes (Life-Threatening, Hospitalization)
  Sender: FDA-Public Use
  Company Number: None

PATIENT
  Age: 56 Year
  Sex: Female
  Weight: 85.73 kg

DRUGS (1)
  1. CARTIA (DILTIAZEM) [Suspect]
     Indication: CARDIAC DISORDER
     Dosage: 120 MG X 1   1 AT HS  ORAL
     Route: 048
     Dates: start: 20121219, end: 20121223

REACTIONS (3)
  - Skin exfoliation [None]
  - Rash [None]
  - Blister [None]
